FAERS Safety Report 15835894 (Version 1)
Quarter: 2019Q1

REPORT INFORMATION
  Report Type: Spontaneous
  Country: NL (occurrence: NL)
  Receive Date: 20190117
  Receipt Date: 20190117
  Transmission Date: 20190417
  Serious: Yes (Death, Other)
  Sender: FDA-Public Use
  Company Number: NL-ROCHE-2244417

PATIENT
  Age: 62 Year
  Sex: Male
  Weight: 67 kg

DRUGS (4)
  1. FAVIPIRAVIR [Suspect]
     Active Substance: FAVIPIRAVIR
     Dosage: 3600 MILLIGRAM DAILY; LOADING DOSE ON DAY 1
     Route: 048
  2. OSELTAMIVIR [Suspect]
     Active Substance: OSELTAMIVIR
     Indication: H1N1 INFLUENZA
     Dosage: 300 MILLIGRAM DAILY; LOADING DOSE ON DAY 1
     Route: 048
  3. OSELTAMIVIR [Suspect]
     Active Substance: OSELTAMIVIR
     Dosage: 150 MILLIGRAM DAILY; MAINTENANCE DOSE
     Route: 048
  4. FAVIPIRAVIR [Suspect]
     Active Substance: FAVIPIRAVIR
     Indication: H1N1 INFLUENZA
     Dosage: 800 MILLIGRAM DAILY; MAINTENANCE DOSE; HALF OF THE MAINTENANCE DOSE WAS GIVEN BECAUSE OF UNKNOWN EFF
     Route: 048

REACTIONS (2)
  - Death [Fatal]
  - Drug ineffective [Unknown]
